FAERS Safety Report 13100932 (Version 5)
Quarter: 2019Q3

REPORT INFORMATION
  Report Type: Report from Study
  Country: KR (occurrence: KR)
  Receive Date: 20170110
  Receipt Date: 20190916
  Transmission Date: 20191004
  Serious: Yes (Hospitalization, Other)
  Sender: FDA-Public Use
  Company Number: KR-BAYER-2014-133126

PATIENT
  Age: 35 Year
  Sex: Female

DRUGS (2)
  1. BETAFERON [Suspect]
     Active Substance: INTERFERON BETA-1B
     Indication: MULTIPLE SCLEROSIS
     Dosage: 1 ML, QOD
     Route: 058
     Dates: start: 20120502
  2. BETAFERON [Suspect]
     Active Substance: INTERFERON BETA-1B
     Indication: MULTIPLE SCLEROSIS
     Dosage: UNK UNK, QOD
     Route: 058

REACTIONS (30)
  - Back pain [Recovering/Resolving]
  - Hypothyroidism [Not Recovered/Not Resolved]
  - Abortion spontaneous [None]
  - Pain in extremity [Not Recovered/Not Resolved]
  - Gastritis [None]
  - Abdominal pain [Recovering/Resolving]
  - Pain [None]
  - Abdominal pain [Recovered/Resolved]
  - Nausea [Recovered/Resolved]
  - Gait disturbance [None]
  - Pain in extremity [Not Recovered/Not Resolved]
  - Pain in extremity [Not Recovered/Not Resolved]
  - Weight decreased [None]
  - Depressed mood [None]
  - Stress [None]
  - Maternal exposure during pregnancy [None]
  - Hyperhidrosis [Recovered/Resolved]
  - Alopecia [Not Recovered/Not Resolved]
  - Groin pain [Not Recovered/Not Resolved]
  - Pain [None]
  - Muscular weakness [None]
  - Memory impairment [Not Recovered/Not Resolved]
  - Limb discomfort [Recovering/Resolving]
  - Vomiting [Recovered/Resolved]
  - Fatigue [None]
  - Pain in extremity [Recovering/Resolving]
  - Pain in extremity [Not Recovered/Not Resolved]
  - Fear of eating [None]
  - Road traffic accident [None]
  - Discomfort [Not Recovered/Not Resolved]

NARRATIVE: CASE EVENT DATE: 2014
